FAERS Safety Report 5063753-8 (Version None)
Quarter: 2006Q3

REPORT INFORMATION
  Report Type: 
  Country: None (occurrence: None)
  Receive Date: 20060703
  Receipt Date: 20051103
  Transmission Date: 20061208
  Serious: No
  Sender: FDA-Public Use
  Company Number: 2005S1011017

PATIENT
  Age: 48 Year
  Sex: Female

DRUGS (7)
  1. CLOZAPINE [Suspect]
     Indication: SCHIZOPHRENIA
     Dosage: 400 MG; HS; ORAL
     Route: 048
     Dates: start: 20040223
  2. RISPERIDONE [Concomitant]
  3. SETRALINE HCL [Concomitant]
  4. VALPROATE SODIUM [Concomitant]
  5. LEVOTHYROXINE SODIUM [Concomitant]
  6. LISINOPRIL [Concomitant]
  7. GEMFIBROZIL [Concomitant]

REACTIONS (2)
  - GRANULOCYTOPENIA [None]
  - LEUKOPENIA [None]
